FAERS Safety Report 10141482 (Version 2)
Quarter: 2014Q2

REPORT INFORMATION
  Report Type: Report from Study
  Country: US (occurrence: US)
  Receive Date: 20140429
  Receipt Date: 20140429
  Transmission Date: 20141212
  Serious: Yes (Hospitalization)
  Sender: FDA-Public Use
  Company Number: US-SA-2013SA120562

PATIENT
  Age: 46 Year
  Sex: Female

DRUGS (2)
  1. AUBAGIO [Suspect]
     Indication: MULTIPLE SCLEROSIS
     Route: 048
     Dates: start: 20131116
  2. AUBAGIO [Suspect]
     Indication: MULTIPLE SCLEROSIS
     Route: 048

REACTIONS (7)
  - Pneumonia [Unknown]
  - Wound [Unknown]
  - Dysarthria [Unknown]
  - Discomfort [Unknown]
  - Alopecia [Unknown]
  - Drug dose omission [Unknown]
  - Unevaluable event [Unknown]
